FAERS Safety Report 9633417 (Version 2)
Quarter: 2014Q1

REPORT INFORMATION
  Report Type: Spontaneous
  Country: US (occurrence: US)
  Receive Date: 20131021
  Receipt Date: 20140117
  Transmission Date: 20141002
  Serious: No
  Sender: FDA-Public Use
  Company Number: US-BRISTOL-MYERS SQUIBB COMPANY-19369164

PATIENT
  Age: 42 Year
  Sex: Male

DRUGS (8)
  1. YERVOY [Suspect]
     Indication: GLIOBLASTOMA MULTIFORME
     Dosage: CVS CAREMARK PRESCRIPTION NUMBERS RX 104-244756 AND 104-244697 FOR THE VIALS OF YERVOY.
     Route: 042
     Dates: start: 20130905
  2. BACTRIM [Concomitant]
  3. CELEBREX [Concomitant]
  4. LYRICA [Concomitant]
  5. ZOFRAN [Concomitant]
  6. NEXIUM [Concomitant]
  7. KEPPRA [Concomitant]
  8. DECADRON [Concomitant]

REACTIONS (2)
  - Cough [Unknown]
  - Off label use [Unknown]
